FAERS Safety Report 4565854-7 (Version None)
Quarter: 2005Q1

REPORT INFORMATION
  Report Type: 
  Country: None (occurrence: None)
  Receive Date: 20050128
  Receipt Date: 20050112
  Transmission Date: 20050727
  Serious: Yes (Hospitalization)
  Sender: FDA-Public Use
  Company Number: DSA_25650_2005

PATIENT
  Age: 63 Year
  Sex: Male

DRUGS (2)
  1. ENALAPRIL MALEATE [Suspect]
     Dosage: DF
  2. FUROSEMIDE [Suspect]
     Dosage: DF

REACTIONS (2)
  - DRUG INEFFECTIVE [None]
  - HYPERTENSION [None]
